FAERS Safety Report 11999414 (Version 2)
Quarter: 2016Q1

REPORT INFORMATION
  Report Type: Spontaneous
  Country: BR (occurrence: BR)
  Receive Date: 20160204
  Receipt Date: 20160211
  Transmission Date: 20160526
  Serious: Yes (Other)
  Sender: FDA-Public Use
  Company Number: BR-AMGEN-BRASP2016012205

PATIENT
  Age: 37 Year
  Sex: Female

DRUGS (10)
  1. PEGFILGRASTIM [Suspect]
     Active Substance: PEGFILGRASTIM
     Indication: ADENOCARCINOMA OF THE CERVIX
     Dosage: 6 MG, 1 IN 21 D
     Route: 058
     Dates: start: 20141015
  2. CISPLATIN. [Suspect]
     Active Substance: CISPLATIN
     Indication: ADENOCARCINOMA OF THE CERVIX
     Dosage: 50 MG/M2, 1 IN 21 D
     Route: 042
     Dates: start: 20141015
  3. LEVOFLOXACIN. [Concomitant]
     Active Substance: LEVOFLOXACIN
     Indication: ADENOCARCINOMA OF THE CERVIX
     Dosage: 500 MG, DAILY
  4. BEVACIZUMAB [Suspect]
     Active Substance: BEVACIZUMAB
     Indication: METASTASES TO LUNG
     Dosage: 15 MG/KG, 1 IN 21 D
     Route: 042
     Dates: start: 20150225
  5. PACLITAXEL. [Suspect]
     Active Substance: PACLITAXEL
     Indication: METASTASES TO LUNG
  6. LEVOFLOXACIN. [Concomitant]
     Active Substance: LEVOFLOXACIN
     Indication: METASTASES TO LUNG
  7. BEVACIZUMAB [Suspect]
     Active Substance: BEVACIZUMAB
     Indication: ADENOCARCINOMA OF THE CERVIX
     Dosage: 15 MG/KG, 1 IN 21 D
     Route: 042
     Dates: start: 20141015
  8. CISPLATIN. [Suspect]
     Active Substance: CISPLATIN
     Indication: METASTASES TO LUNG
  9. PEGFILGRASTIM [Suspect]
     Active Substance: PEGFILGRASTIM
     Indication: METASTASES TO LUNG
  10. PACLITAXEL. [Suspect]
     Active Substance: PACLITAXEL
     Indication: ADENOCARCINOMA OF THE CERVIX
     Dosage: 175 MG/M2, 1 IN 21 D
     Route: 042
     Dates: start: 20141015

REACTIONS (9)
  - Nausea [Unknown]
  - Neutropenia [Unknown]
  - Neurotoxicity [Unknown]
  - Alopecia [Unknown]
  - Anaemia [Unknown]
  - Haemorrhage [Unknown]
  - Hypertension [Unknown]
  - Proteinuria [Unknown]
  - Thrombocytopenia [Unknown]
